FAERS Safety Report 10255866 (Version 1)
Quarter: 2014Q2

REPORT INFORMATION
  Report Type: Spontaneous
  Country: GB (occurrence: GB)
  Receive Date: 20140624
  Receipt Date: 20140624
  Transmission Date: 20141212
  Serious: Yes (Other)
  Sender: FDA-Public Use
  Company Number: GB-WATSON-2014-13227

PATIENT
  Age: 51 Year
  Sex: Female

DRUGS (1)
  1. SERTRALINE (UNKNOWN) [Suspect]
     Indication: ANXIETY
     Dosage: 50 MG, UNKNOWN
     Route: 048
     Dates: start: 20130921, end: 20130924

REACTIONS (4)
  - Catatonia [Recovering/Resolving]
  - Aphasia [Not Recovered/Not Resolved]
  - Movement disorder [Not Recovered/Not Resolved]
  - Drug ineffective [Unknown]
